FAERS Safety Report 6761079-5 (Version None)
Quarter: 2010Q2

REPORT INFORMATION
  Report Type: 
  Country: None (occurrence: None)
  Receive Date: 20100608
  Receipt Date: 20100531
  Transmission Date: 20101027
  Serious: Yes (Hospitalization)
  Sender: FDA-Public Use
  Company Number: B0659471A

PATIENT
  Age: 35 Year
  Sex: Female

DRUGS (3)
  1. IMIGRAN [Suspect]
     Indication: HEADACHE
     Route: 058
     Dates: start: 20090405, end: 20090405
  2. KETOROLAC TROMETHAMINE [Concomitant]
     Route: 042
     Dates: start: 20090405
  3. DIAZEPAM [Concomitant]
     Route: 048
     Dates: start: 20090405

REACTIONS (1)
  - DYSKINESIA [None]
